FAERS Safety Report 6994992-4 (Version None)
Quarter: 2010Q3

REPORT INFORMATION
  Report Type: 
  Country: None (occurrence: None)
  Receive Date: 20100917
  Receipt Date: 20090812
  Transmission Date: 20110219
  Serious: Yes (Other)
  Sender: FDA-Public Use
  Company Number: HQWYE681603AUG05

PATIENT
  Sex: Female

DRUGS (6)
  1. PREMPRO [Suspect]
     Indication: HORMONE REPLACEMENT THERAPY
  2. PREMPRO [Suspect]
     Indication: MENOPAUSAL SYMPTOMS
  3. PROVERA [Suspect]
  4. MEDROXYPROGESTERONE ACETATE [Suspect]
  5. PREMARIN [Suspect]
     Indication: HORMONE REPLACEMENT THERAPY
  6. CYCRIN [Suspect]

REACTIONS (1)
  - BREAST CANCER [None]
